FAERS Safety Report 7065334-3 (Version None)
Quarter: 2010Q4

REPORT INFORMATION
  Report Type: 
  Country: None (occurrence: None)
  Receive Date: 20101022
  Receipt Date: 20101022
  Transmission Date: 20110411
  Serious: Yes (Hospitalization)
  Sender: FDA-Public Use
  Company Number: None

PATIENT
  Age: 49 Year
  Sex: Male

DRUGS (1)
  1. IFOSFAMIDE [Suspect]
     Dosage: 1.5MG/M2 DAILY FOR 3 DAYS IV BOLUS
     Route: 040
     Dates: start: 20091008, end: 20091010

REACTIONS (3)
  - CONFUSIONAL STATE [None]
  - DYSKINESIA [None]
  - INCOHERENT [None]
